FAERS Safety Report 5588608-1 (Version None)
Quarter: 2008Q1

REPORT INFORMATION
  Report Type: 
  Country: None (occurrence: None)
  Receive Date: 20080111
  Receipt Date: 20071231
  Transmission Date: 20080703
  Serious: Yes (Disabling)
  Sender: FDA-Public Use
  Company Number: GB-PFIZER INC-2005063762

PATIENT
  Sex: Female
  Weight: 12 kg

DRUGS (4)
  1. GENOTROPIN [Suspect]
     Indication: BODY HEIGHT BELOW NORMAL
     Dosage: TEXT:5.25MG/M/WEEK (0.23MG/KG/WEEK)-FREQ:WEEKLY
     Route: 058
  2. GENOTROPIN [Suspect]
     Dosage: TEXT:6.55MG/M/WEEK (0.3MG/KG/WEEK)-FREQ:WEEKLY
     Route: 058
  3. GENOTROPIN [Suspect]
     Dosage: TEXT:10.5MG /M/WEEK (0.47MG/KG/WEEK).-FREQ:WEEKLY
     Route: 058
  4. GENOTROPIN [Suspect]
     Dosage: TEXT:3.9MG/M/WEEK (0.17MG /KG/WEEK)-FREQ:WEEKLY
     Route: 058

REACTIONS (2)
  - MACULAR OEDEMA [None]
  - RETINOPATHY [None]
